FAERS Safety Report 4994353-3 (Version None)
Quarter: 2006Q1

REPORT INFORMATION
  Report Type: 
  Country: None (occurrence: None)
  Receive Date: 20060314
  Receipt Date: 20050728
  Transmission Date: 20060701
  Serious: Yes (Other)
  Sender: FDA-Public Use
  Company Number: 200512482BCC

PATIENT
  Age: 33 Year
  Sex: Female
  Weight: 63.5036 kg

DRUGS (6)
  1. ALEVE (CAPLET) [Suspect]
     Indication: HEADACHE
     Dosage: 220 MG, QD, ORAL
     Route: 048
     Dates: start: 20050602
  2. ALEVE (CAPLET) [Suspect]
     Indication: MUSCULOSKELETAL STIFFNESS
     Dosage: 220 MG, QD, ORAL
     Route: 048
     Dates: start: 20050602
  3. ALEVE (CAPLET) [Suspect]
     Indication: NECK PAIN
     Dosage: 220 MG, QD, ORAL
     Route: 048
     Dates: start: 20050602
  4. ALEVE (CAPLET) [Suspect]
     Indication: HEADACHE
     Dosage: 220 MG, QD, ORAL
     Route: 048
     Dates: start: 20050612
  5. ALEVE (CAPLET) [Suspect]
     Indication: MUSCULOSKELETAL STIFFNESS
     Dosage: 220 MG, QD, ORAL
     Route: 048
     Dates: start: 20050612
  6. ALEVE (CAPLET) [Suspect]
     Indication: NECK PAIN
     Dosage: 220 MG, QD, ORAL
     Route: 048
     Dates: start: 20050612

REACTIONS (12)
  - BURNING SENSATION [None]
  - FEELING HOT [None]
  - GENERALISED ERYTHEMA [None]
  - HEADACHE [None]
  - HYPERSENSITIVITY [None]
  - NAUSEA [None]
  - OCULAR HYPERAEMIA [None]
  - OEDEMA PERIPHERAL [None]
  - PRURITUS [None]
  - RASH [None]
  - SWOLLEN TONGUE [None]
  - URTICARIA [None]
